FAERS Safety Report 8767856 (Version 1)
Quarter: 2012Q4

REPORT INFORMATION
  Report Type: 
  Country: DE (occurrence: DE)
  Receive Date: 20120905
  Receipt Date: 20120905
  Transmission Date: 20130627
  Serious: Yes (Other)
  Sender: FDA-Public Use
  Company Number: GXKR2012DE002781

PATIENT

DRUGS (9)
  1. PROMETHAZINE [Suspect]
     Indication: RESTLESSNESS
     Dosage: first 3x10 mg/d, later 4x50 mg/d, from 6.6gw to 32.5 gw
     Route: 048
     Dates: start: 20110527, end: 20111124
  2. RISPERDAL [Suspect]
     Indication: PSYCHOTIC DISORDER
     Dosage: 25 mg [until gw 5 every 2 w?eks, afterwards every 3 weeks)
     Route: 030
     Dates: start: 20110401, end: 20111124
  3. SEROQUEL [Suspect]
     Indication: PSYCHOTIC DISORDER
     Dosage: 400 [mg/d ]/ reduction to 200 mg/d from gw 5 on
     Route: 048
     Dates: start: 20110409, end: 20111124
  4. MELPERONE [Concomitant]
     Indication: PSYCHOTIC DISORDER
     Dosage: UNK mg, UNK
     Route: 048
     Dates: start: 20110409, end: 20110516
  5. TOLPERISONE [Concomitant]
     Indication: PRODUCT USED FOR UNKNOWN INDICATION
     Route: 048
     Dates: start: 20110409, end: 20110516
  6. CARBAMAZEPINE [Concomitant]
     Indication: TRIGEMINAL NEURALGIA
     Dosage: 100 mg, TID
     Route: 048
     Dates: start: 20110927, end: 20111124
  7. IBUPROFEN [Concomitant]
     Indication: TRIGEMINAL NEURALGIA
     Dosage: not daily intake
     Route: 048
     Dates: start: 20110927, end: 20111124
  8. BETAMETHASONE [Concomitant]
     Indication: MATERNAL THERAPY TO ENHANCE FOETAL LUNG MATURITY
     Dosage: 12 mg/day
     Route: 030
     Dates: start: 20111120, end: 20111121
  9. ACETYLSALICYLIC ACID [Concomitant]
     Indication: PRE-ECLAMPSIA
     Dosage: 100 mg/day
     Route: 048
     Dates: end: 20111120

REACTIONS (3)
  - Gestational diabetes [Recovered/Resolved]
  - Pre-eclampsia [Recovered/Resolved]
  - Maternal exposure during pregnancy [Unknown]
